FAERS Safety Report 17798690 (Version 1)
Quarter: 2020Q2

REPORT INFORMATION
  Report Type: Spontaneous
  Country: US (occurrence: US)
  Receive Date: 20200518
  Receipt Date: 20200518
  Transmission Date: 20200714
  Serious: Yes (Other)
  Sender: FDA-Public Use
  Company Number: None

PATIENT
  Age: 84 Year
  Sex: Female
  Weight: 62.55 kg

DRUGS (15)
  1. SUPER C CENTRUM SILVER [Concomitant]
  2. MAGNESIUM SUPPLEMENT [Concomitant]
  3. SUPER B COMPLEX [Concomitant]
     Active Substance: CYANOCOBALAMIN\DEXPANTHENOL\NIACINAMIDE\PYRIDOXINE HYDROCHLORIDE\RIBOFLAVIN 5^-PHOSPHATE SODIUM\THIAMINE HYDROCHLORIDE\VITAMIN B COMPLEX
  4. ATORVASTASTIN [Concomitant]
  5. AMLODIPINE [Concomitant]
     Active Substance: AMLODIPINE BESYLATE
  6. XARELTO [Concomitant]
     Active Substance: RIVAROXABAN
  7. MOVE FREE  ADVANCED [Concomitant]
  8. VITAMIN B12 [Concomitant]
     Active Substance: CYANOCOBALAMIN
  9. PRESERVE VISON [Concomitant]
  10. SPIRONOLACTONE 50MG 1 TABLET ONCE DAILY [Suspect]
     Active Substance: SPIRONOLACTONE
     Indication: FLUID RETENTION
     Route: 048
  11. TYLENOL [Concomitant]
     Active Substance: ACETAMINOPHEN
  12. METOPROLOL ER SUCCINATE [Concomitant]
     Active Substance: METOPROLOL SUCCINATE
  13. AMIODARONE [Concomitant]
     Active Substance: AMIODARONE
  14. COQ10 [Concomitant]
     Active Substance: UBIDECARENONE
  15. FISH OIL [Concomitant]
     Active Substance: FISH OIL

REACTIONS (5)
  - Product substitution issue [None]
  - Nasal crusting [None]
  - Alopecia [None]
  - Epistaxis [None]
  - Rhinalgia [None]

NARRATIVE: CASE EVENT DATE: 20200115
